FAERS Safety Report 10201401 (Version 1)
Quarter: 2014Q2

REPORT INFORMATION
  Report Type: Spontaneous
  Country: US (occurrence: US)
  Receive Date: 20140528
  Receipt Date: 20140528
  Transmission Date: 20141212
  Serious: No
  Sender: FDA-Public Use
  Company Number: US-TEVA-483844USA

PATIENT
  Age: 37 Year
  Sex: Female

DRUGS (1)
  1. COPAXONE40 MG [Suspect]
     Indication: MULTIPLE SCLEROSIS
     Dosage: 11.4286 MILLIGRAM DAILY;
     Route: 058
     Dates: start: 20140307

REACTIONS (2)
  - Injection site pain [Unknown]
  - Injection site bruising [Unknown]
